FAERS Safety Report 8004075-2 (Version None)
Quarter: 2011Q4

REPORT INFORMATION
  Report Type: 
  Country: None (occurrence: None)
  Receive Date: 20111222
  Receipt Date: 20111214
  Transmission Date: 20120403
  Serious: Yes (Hospitalization)
  Sender: FDA-Public Use
  Company Number: FR-ASTRAZENECA-2011SE45587

PATIENT
  Age: 49 Year
  Sex: Male

DRUGS (20)
  1. NEXIUM [Suspect]
     Route: 048
     Dates: start: 20110629, end: 20110702
  2. PANTOPRAZOLE [Suspect]
     Route: 042
     Dates: start: 20110623, end: 20110624
  3. OLMESARTAN MEDOXOMIL [Suspect]
     Route: 048
     Dates: start: 20110625, end: 20110712
  4. TRAMADOL HCL [Suspect]
     Dates: start: 20110623, end: 20110624
  5. PHLOROGLUCINOL ARROW [Suspect]
     Route: 048
     Dates: start: 20110627, end: 20110629
  6. VITABACT [Suspect]
     Route: 031
     Dates: start: 20110627, end: 20110712
  7. PANTOPRAZOLE [Suspect]
     Route: 042
     Dates: start: 20110625, end: 20110628
  8. VITAMIN B1 B6 BAYER [Suspect]
     Dosage: 250/35 MG 2 DF THREE TIMES A DAY
     Dates: start: 20110628, end: 20110712
  9. ASPIRIN [Suspect]
     Route: 048
     Dates: start: 20110625, end: 20110705
  10. ZOLPIDEM [Suspect]
     Dates: start: 20110628, end: 20110702
  11. ACETAMINOPHEN [Suspect]
     Dates: end: 20110621
  12. LANSOPRAZOLE [Suspect]
     Route: 048
     Dates: end: 20110621
  13. CEFTRIAXONE [Suspect]
     Route: 042
     Dates: start: 20110626, end: 20110630
  14. SULFASALAZINE [Suspect]
  15. KETOPROFEN [Suspect]
     Route: 048
     Dates: end: 20110621
  16. CORTISONE ACETATE [Concomitant]
     Dosage: 6 INJECTIONS
  17. LOVENOX [Suspect]
     Route: 058
     Dates: start: 20110624, end: 20110630
  18. BISOPROLOL FUMARATE [Suspect]
     Route: 048
     Dates: start: 20110625, end: 20110712
  19. CETIRIZINE ARROW [Concomitant]
     Route: 048
     Dates: start: 20110702, end: 20110705
  20. IMOVANE [Concomitant]
     Route: 048
     Dates: start: 20110702, end: 20110705

REACTIONS (4)
  - NEUTROPENIA [None]
  - RASH [None]
  - DRUG RASH WITH EOSINOPHILIA AND SYSTEMIC SYMPTOMS [None]
  - LIVER INJURY [None]
